FAERS Safety Report 16363056 (Version 1)
Quarter: 2019Q2

REPORT INFORMATION
  Report Type: Spontaneous
  Country: US (occurrence: US)
  Receive Date: 20190528
  Receipt Date: 20190528
  Transmission Date: 20190711
  Serious: Yes (Other)
  Sender: FDA-Public Use
  Company Number: US-BAYER-2019-100830

PATIENT
  Age: 60 Year
  Sex: Male

DRUGS (4)
  1. ADALIMUMAB [Concomitant]
     Active Substance: ADALIMUMAB
  2. METOPROLOL. [Concomitant]
     Active Substance: METOPROLOL
  3. BAYER ASPIRIN [Suspect]
     Active Substance: ASPIRIN
     Dosage: UNK
  4. ELIQUIS [Interacting]
     Active Substance: APIXABAN

REACTIONS (3)
  - Haemoptysis [None]
  - Labelled drug-drug interaction medication error [None]
  - Haematuria [None]
